FAERS Safety Report 9295367 (Version 2)
Quarter: 2014Q1

REPORT INFORMATION
  Report Type: Spontaneous
  Country: DK (occurrence: DK)
  Receive Date: 20130517
  Receipt Date: 20140120
  Transmission Date: 20141002
  Serious: Yes (Death)
  Sender: FDA-Public Use
  Company Number: DK-NOVOPROD-377353

PATIENT
  Age: 64 Year
  Sex: Male
  Weight: 120 kg

DRUGS (2)
  1. VICTOZA [Suspect]
     Indication: TYPE 2 DIABETES MELLITUS
     Dosage: STYRKE: 0,6 MG/DOSIS
     Route: 058
     Dates: start: 20120823
  2. NOVORAPID [Concomitant]
     Indication: TYPE 2 DIABETES MELLITUS

REACTIONS (2)
  - Sudden death [Fatal]
  - Fall [Fatal]
